FAERS Safety Report 12782397 (Version 3)
Quarter: 2016Q4

REPORT INFORMATION
  Report Type: Spontaneous
  Country: IT (occurrence: IT)
  Receive Date: 20160927
  Receipt Date: 20161021
  Transmission Date: 20170207
  Serious: Yes (Hospitalization)
  Sender: FDA-Public Use
  Company Number: IT-ROCHE-1835157

PATIENT
  Age: 86 Year
  Sex: Male

DRUGS (6)
  1. TALOFEN [Suspect]
     Active Substance: PROMAZINE HYDROCHLORIDE
     Indication: AGITATION
     Dosage: ^4 G / 100 ML ORAL DROPS, SOLUTION^
     Route: 048
     Dates: start: 20141127, end: 20160819
  2. KEPPRA [Suspect]
     Active Substance: LEVETIRACETAM
     Indication: EPILEPSY
     Dosage: 500 MG 60 FILM-COATED TABLETS
     Route: 048
     Dates: start: 20141127, end: 20160819
  3. MICARDIS [Concomitant]
     Active Substance: TELMISARTAN
     Indication: HYPERTENSION
     Dosage: 80 MG 28 TABLETS, PERIOD: 1 YEAR
     Route: 048
  4. RIVOTRIL [Suspect]
     Active Substance: CLONAZEPAM
     Indication: EPILEPSY
     Dosage: ^2.5 MG/ML ORAL DROPS, SOLUTION^ 10 ML BOTTLE
     Route: 048
     Dates: start: 20160814, end: 20160819
  5. KEPPRA [Suspect]
     Active Substance: LEVETIRACETAM
     Route: 048
     Dates: start: 20160825
  6. SERENASE (ITALY) [Suspect]
     Active Substance: HALOPERIDOL
     Indication: AGITATION
     Dosage: ^2 MG/ML ORAL DROPS, SOLUTION^ 1 VIAL 15 ML
     Route: 048
     Dates: start: 20141127, end: 20160819

REACTIONS (1)
  - Sopor [Recovered/Resolved]

NARRATIVE: CASE EVENT DATE: 20160819
